FAERS Safety Report 5217468-3 (Version None)
Quarter: 2006Q4

REPORT INFORMATION
  Report Type: 
  Country: None (occurrence: None)
  Receive Date: 20061130
  Receipt Date: 20060414
  Transmission Date: 20070319
  Serious: Yes (Hospitalization)
  Sender: FDA-Public Use
  Company Number: US_0509121797

PATIENT
  Age: 37 Year
  Sex: Female
  Weight: 50.8 kg

DRUGS (1)
  1. ZYPREXA [Suspect]
     Indication: DEPRESSION
     Dosage: 2.5 MG, 3/D, ORAL
     Route: 048
     Dates: start: 19980101, end: 20040101

REACTIONS (7)
  - BLOOD CHOLESTEROL INCREASED [None]
  - DIABETES MELLITUS [None]
  - EMOTIONAL DISTRESS [None]
  - HYPERTENSION [None]
  - POLYCYSTIC OVARIES [None]
  - RENAL DISORDER [None]
  - TOOTH LOSS [None]
